FAERS Safety Report 8351878-0 (Version None)
Quarter: 2012Q2

REPORT INFORMATION
  Report Type: 
  Country: None (occurrence: None)
  Receive Date: 20120510
  Receipt Date: 20120510
  Transmission Date: 20120825
  Serious: No
  Sender: FDA-Public Use
  Company Number: None

PATIENT
  Sex: Female

DRUGS (1)
  1. FORTEO [Suspect]
     Indication: OSTEOPOROSIS
     Dosage: 20MCG QD SQ
     Route: 058
     Dates: start: 20120124

REACTIONS (2)
  - PAIN IN EXTREMITY [None]
  - VITAMIN D DEFICIENCY [None]
